FAERS Safety Report 14014077 (Version 1)
Quarter: 2017Q3

REPORT INFORMATION
  Report Type: Report from Study
  Country: None (occurrence: CA)
  Receive Date: 20170927
  Receipt Date: 20170927
  Transmission Date: 20171128
  Serious: Yes (Other)
  Sender: FDA-Public Use
  Company Number: CA-ABBVIE-17K-028-2108037-00

PATIENT
  Sex: Female

DRUGS (3)
  1. HUMIRA [Suspect]
     Active Substance: ADALIMUMAB
     Indication: NEUROSARCOIDOSIS
     Route: 058
     Dates: start: 20170620
  2. CORTISONE [Suspect]
     Active Substance: CORTISONE\HYDROCORTISONE
     Indication: NEUROSARCOIDOSIS
     Route: 048
     Dates: end: 2017
  3. CORTISONE [Suspect]
     Active Substance: CORTISONE\HYDROCORTISONE
     Dosage: 35 MG DECREASING BY 5 MG PER MONTH
     Route: 048
     Dates: start: 2017

REACTIONS (5)
  - Dizziness [Recovering/Resolving]
  - Nausea [Recovering/Resolving]
  - Therapeutic response shortened [Not Recovered/Not Resolved]
  - Vision blurred [Not Recovered/Not Resolved]
  - Neurosarcoidosis [Not Recovered/Not Resolved]

NARRATIVE: CASE EVENT DATE: 2017
